FAERS Safety Report 9357791 (Version 1)
Quarter: 2013Q2

REPORT INFORMATION
  Report Type: Spontaneous
  Country: US (occurrence: US)
  Receive Date: 20130620
  Receipt Date: 20130620
  Transmission Date: 20140414
  Serious: No
  Sender: FDA-Public Use
  Company Number: US-US-EMD SERONO, INC.-7172549

PATIENT
  Age: 36 Year
  Sex: Female

DRUGS (1)
  1. REBIF [Suspect]
     Indication: MULTIPLE SCLEROSIS
     Route: 058
     Dates: start: 20121024, end: 20121101

REACTIONS (4)
  - Nausea [Recovering/Resolving]
  - Weight decreased [Unknown]
  - Feeling abnormal [Recovering/Resolving]
  - Malaise [Recovering/Resolving]
